FAERS Safety Report 19735062 (Version 2)
Quarter: 2022Q3

REPORT INFORMATION
  Report Type: Report from Study
  Country: SE (occurrence: SE)
  Receive Date: 20210824
  Receipt Date: 20220926
  Transmission Date: 20221027
  Serious: Yes (Other)
  Sender: FDA-Public Use
  Company Number: SE-ABBVIE-21K-150-4048395-00

PATIENT
  Sex: Male

DRUGS (3)
  1. CARBIDOPA\LEVODOPA [Suspect]
     Active Substance: CARBIDOPA\LEVODOPA
     Indication: Parkinson^s disease
     Dosage: DOSAGES NIGHT: CONTINUOUS DOSE 3.8 ML/H, EXTRA DOSE 1 ML
     Route: 050
     Dates: start: 20220920
  2. CARBIDOPA\LEVODOPA [Suspect]
     Active Substance: CARBIDOPA\LEVODOPA
     Dosage: THERAPY DURATION: REMAINS AT 24H.
     Route: 050
     Dates: start: 20170605
  3. CARBIDOPA\LEVODOPA [Suspect]
     Active Substance: CARBIDOPA\LEVODOPA
     Dosage: DOSAGES DAY (07AM TO 06.30PM): MORNING DOSE 5.5 ML, CONTINUOUS DOSE 8.4 ML/H, EXTRA DOSE 4 ML
     Route: 050
     Dates: start: 20220920

REACTIONS (6)
  - Spinal stenosis [Recovering/Resolving]
  - COVID-19 [Recovered/Resolved]
  - Muscle fatigue [Unknown]
  - Device issue [Unknown]
  - Walking aid user [Unknown]
  - Device dislocation [Unknown]

NARRATIVE: CASE EVENT DATE: 20210101
